FAERS Safety Report 8597771-X (Version None)
Quarter: 2012Q3

REPORT INFORMATION
  Report Type: 
  Country: None (occurrence: None)
  Receive Date: 20120816
  Receipt Date: 20120810
  Transmission Date: 20120928
  Serious: Yes (Disabling)
  Sender: FDA-Public Use
  Company Number: PHEH2012US013929

PATIENT
  Sex: Female
  Weight: 74.376 kg

DRUGS (8)
  1. TOPROL-XL [Concomitant]
     Indication: BLOOD PRESSURE ABNORMAL
     Route: 048
  2. LORAZEPAM [Concomitant]
     Indication: NERVOUSNESS
     Dosage: EVERY 8 HOURS, IF NEEDED
     Route: 048
  3. RECLAST [Suspect]
     Indication: OSTEOPOROSIS
     Dosage: 5 MG/YEAR
     Route: 042
     Dates: start: 20090101
  4. ZOLOFT [Concomitant]
     Indication: DEPRESSION
     Route: 048
  5. SIMVASTATIN [Concomitant]
     Indication: HYPERCHOLESTEROLAEMIA
     Dosage: AT BEDTIME
     Route: 048
  6. CALCIUM WITH VITAMIN D [Concomitant]
     Indication: OSTEOPOROSIS
     Dosage: DAILY
     Route: 048
  7. SYNTHROID [Concomitant]
     Indication: THYROID DISORDER
     Route: 048
  8. RECLAST [Suspect]
     Dosage: 5 MG/ ONCE YEARLY
     Route: 042
     Dates: start: 20100730, end: 20100730

REACTIONS (5)
  - URINARY RETENTION [None]
  - URINARY HESITATION [None]
  - MICTURITION URGENCY [None]
  - INFLUENZA LIKE ILLNESS [None]
  - MALAISE [None]
